FAERS Safety Report 4315242-3 (Version None)
Quarter: 2004Q1

REPORT INFORMATION
  Report Type: 
  Country: None (occurrence: None)
  Receive Date: 20040309
  Receipt Date: 20040225
  Transmission Date: 20041129
  Serious: Yes (Hospitalization)
  Sender: FDA-Public Use
  Company Number: EMADSS2003000738

PATIENT
  Age: 72 Year
  Sex: Female

DRUGS (9)
  1. REMICADE [Suspect]
     Indication: PSORIATIC ARTHROPATHY
     Dosage: 5 MG/KG, 1 IN 1 AS NECESSARY, INTRAVENOUS DRIP
     Route: 041
     Dates: start: 20021023, end: 20021023
  2. REMICADE [Suspect]
     Indication: PSORIATIC ARTHROPATHY
     Dosage: 5 MG/KG, 1 IN 1 AS NECESSARY, INTRAVENOUS DRIP
     Route: 041
     Dates: start: 20021213, end: 20021213
  3. METHOTREXATE [Suspect]
     Indication: PSORIATIC ARTHROPATHY
     Dosage: 20 MG, ORAL
     Route: 048
     Dates: start: 19960909
  4. DEFLAZACORT (DEFLAZACORT) [Concomitant]
  5. MIACALCIN [Concomitant]
  6. AIRTAL (ACECLOFENAC) [Concomitant]
  7. INDAPAMIDE [Concomitant]
  8. SERTRALINE (SERTRALINE) [Concomitant]
  9. IRBESARTAN (IRBESARTAN) [Concomitant]

REACTIONS (11)
  - ASTHENIA [None]
  - BACK PAIN [None]
  - BLOOD IMMUNOGLOBULIN M INCREASED [None]
  - DRUG INEFFECTIVE [None]
  - GAMMOPATHY [None]
  - LIGHT CHAIN ANALYSIS INCREASED [None]
  - LYMPHADENOPATHY [None]
  - MASS [None]
  - NORMOCHROMIC NORMOCYTIC ANAEMIA [None]
  - PALPITATIONS [None]
  - WALDENSTROM'S MACROGLOBULINAEMIA [None]
